FAERS Safety Report 17371413 (Version 1)
Quarter: 2020Q1

REPORT INFORMATION
  Report Type: Spontaneous
  Country: JP (occurrence: JP)
  Receive Date: 20200205
  Receipt Date: 20200205
  Transmission Date: 20200409
  Serious: Yes (Other)
  Sender: FDA-Public Use
  Company Number: JP-PFIZER INC-2020046403

PATIENT
  Age: 81 Year
  Sex: Male

DRUGS (1)
  1. XALATAN [Suspect]
     Active Substance: LATANOPROST
     Indication: GLAUCOMA
     Dosage: UNK, 1X/DAY

REACTIONS (4)
  - Cataract [Unknown]
  - Visual field defect [Unknown]
  - Condition aggravated [Unknown]
  - Eye discharge [Unknown]
